FAERS Safety Report 6179601-9 (Version None)
Quarter: 2009Q2

REPORT INFORMATION
  Report Type: 
  Country: None (occurrence: None)
  Receive Date: 20090501
  Receipt Date: 20090501
  Transmission Date: 20091009
  Serious: Yes (Life-Threatening, Other)
  Sender: FDA-Public Use
  Company Number: None

PATIENT
  Sex: Female
  Weight: 56.6996 kg

DRUGS (2)
  1. FOSAMAX [Suspect]
     Indication: OSTEOPENIA
     Dosage: 70 MG 1 Q WEEK- PO
     Route: 048
     Dates: start: 20040504, end: 20061220
  2. BONIVA [Suspect]
     Indication: OSTEOPENIA
     Dosage: 150 MF 1 Q MOUTH PO
     Route: 048
     Dates: start: 20070123, end: 20070531

REACTIONS (2)
  - DYSPEPSIA [None]
  - ODYNOPHAGIA [None]
